FAERS Safety Report 14901485 (Version 1)
Quarter: 2018Q2

REPORT INFORMATION
  Report Type: Spontaneous
  Country: DE (occurrence: DE)
  Receive Date: 20180516
  Receipt Date: 20180516
  Transmission Date: 20180711
  Serious: Yes (Life-Threatening)
  Sender: FDA-Public Use
  Company Number: DE-DRREDDYS-GER/GER/18/0098853

PATIENT
  Age: 48 Year
  Sex: Female
  Weight: 70 kg

DRUGS (6)
  1. IBUPROFEN. [Concomitant]
     Active Substance: IBUPROFEN
     Indication: PAIN
     Route: 048
  2. METAMIZOL [Suspect]
     Active Substance: METAMIZOLE SODIUM
     Route: 048
     Dates: start: 20170701
  3. FRAGMIN P FORTE [Concomitant]
     Active Substance: DALTEPARIN SODIUM
     Indication: PRODUCT USED FOR UNKNOWN INDICATION
  4. PANTOPRAZOLE [Suspect]
     Active Substance: PANTOPRAZOLE
     Indication: PRODUCT USED FOR UNKNOWN INDICATION
  5. METAMIZOL [Suspect]
     Active Substance: METAMIZOLE SODIUM
     Indication: PAIN
     Dates: start: 20170619
  6. TILIDINE [Concomitant]
     Active Substance: TILIDINE
     Indication: PAIN
     Route: 048

REACTIONS (2)
  - Toxic epidermal necrolysis [Not Recovered/Not Resolved]
  - Product substitution issue [Not Recovered/Not Resolved]

NARRATIVE: CASE EVENT DATE: 20170701
